FAERS Safety Report 4385704-1 (Version None)
Quarter: 2004Q2

REPORT INFORMATION
  Report Type: 
  Country: None (occurrence: None)
  Receive Date: 20040625
  Receipt Date: 20040625
  Transmission Date: 20050107
  Serious: Yes (Hospitalization)
  Sender: FDA-Public Use
  Company Number: None

PATIENT
  Age: 87 Year
  Sex: Male
  Weight: 71.2147 kg

DRUGS (1)
  1. GLYBURIDE [Suspect]
     Indication: MEDICATION ERROR
     Dosage: 5 MG PO PO BID
     Route: 048
     Dates: start: 20040401, end: 20040403

REACTIONS (5)
  - ABDOMINAL DISTENSION [None]
  - HYPOGLYCAEMIA [None]
  - ILEUS [None]
  - LIVER ABSCESS [None]
  - MEDICATION ERROR [None]
